FAERS Safety Report 12496023 (Version 1)
Quarter: 2016Q2

REPORT INFORMATION
  Report Type: Spontaneous
  Country: GB (occurrence: GB)
  Receive Date: 20160624
  Receipt Date: 20160624
  Transmission Date: 20160815
  Serious: Yes (Other)
  Sender: FDA-Public Use
  Company Number: GB-FRESENIUS KABI-FK201603803

PATIENT
  Age: 47 Year
  Sex: Female

DRUGS (6)
  1. NEULASTA [Suspect]
     Active Substance: PEGFILGRASTIM
     Indication: PRODUCT USED FOR UNKNOWN INDICATION
  2. THYROXINE [Concomitant]
     Active Substance: LEVOTHYROXINE
  3. CARBOPLATIN (MANUFACTURER UNKNOWN) [Suspect]
     Active Substance: CARBOPLATIN
     Indication: BREAST CANCER
     Route: 065
  4. ONDANSETRON [Concomitant]
     Active Substance: ONDANSETRON
  5. DOCETAXEL (MANUFACTURER UNKNOWN) [Suspect]
     Active Substance: DOCETAXEL
     Indication: BREAST CANCER
     Route: 065
  6. DEXAMETHASONE. [Concomitant]
     Active Substance: DEXAMETHASONE

REACTIONS (18)
  - Lymphadenectomy [Unknown]
  - Nausea [Unknown]
  - Hand deformity [Recovering/Resolving]
  - Asthenia [Not Recovered/Not Resolved]
  - Limb discomfort [Not Recovered/Not Resolved]
  - Oral disorder [Unknown]
  - Diarrhoea [Recovering/Resolving]
  - Coating in mouth [Unknown]
  - Dry skin [Unknown]
  - Toxicity to various agents [Unknown]
  - Neuropathy peripheral [Not Recovered/Not Resolved]
  - Dyspnoea exertional [Not Recovered/Not Resolved]
  - Decreased appetite [Unknown]
  - Dysgeusia [Unknown]
  - Vein discolouration [Unknown]
  - Menstrual disorder [Unknown]
  - Phlebitis [Recovering/Resolving]
  - Alopecia [Not Recovered/Not Resolved]
